FAERS Safety Report 7504242-8 (Version None)
Quarter: 2011Q2

REPORT INFORMATION
  Report Type: 
  Country: None (occurrence: None)
  Receive Date: 20110401
  Receipt Date: 20110107
  Transmission Date: 20111010
  Serious: No
  Sender: FDA-Public Use
  Company Number: US-004491

PATIENT
  Sex: Male
  Weight: 98.8842 kg

DRUGS (6)
  1. FIRMAGON [Suspect]
     Indication: PROSTATE CANCER
     Dosage: 240 MG
     Dates: start: 20110106, end: 20110106
  2. AMOXICILLIN [Concomitant]
  3. LEVAQUIN [Concomitant]
  4. VICODIN [Concomitant]
  5. NORVASC [Concomitant]
  6. LISINOPRIL [Concomitant]

REACTIONS (2)
  - INJECTION SITE INDURATION [None]
  - INJECTION SITE ERYTHEMA [None]
